FAERS Safety Report 5632773-4 (Version None)
Quarter: 2008Q1

REPORT INFORMATION
  Report Type: 
  Country: None (occurrence: None)
  Receive Date: 20080221
  Receipt Date: 20080210
  Transmission Date: 20080703
  Serious: Yes (Other)
  Sender: FDA-Public Use
  Company Number: IL-JNJFOC-20080106296

PATIENT
  Age: 50 Year
  Sex: Male

DRUGS (5)
  1. TOPAMAX [Suspect]
     Indication: BIPOLAR DISORDER
  2. GLUCOPHAGE [Interacting]
     Indication: DRUG USE FOR UNKNOWN INDICATION
  3. MICROPIRIN [Concomitant]
     Indication: DRUG USE FOR UNKNOWN INDICATION
  4. SIMVASTATIN [Concomitant]
     Indication: DRUG USE FOR UNKNOWN INDICATION
  5. ENTUMIN [Concomitant]
     Indication: DRUG USE FOR UNKNOWN INDICATION

REACTIONS (4)
  - DEPRESSED LEVEL OF CONSCIOUSNESS [None]
  - DISORIENTATION [None]
  - DRUG INTERACTION [None]
  - PALLOR [None]
